FAERS Safety Report 19234889 (Version 1)
Quarter: 2021Q2

REPORT INFORMATION
  Report Type: Spontaneous
  Country: US (occurrence: US)
  Receive Date: 20210509
  Receipt Date: 20210509
  Transmission Date: 20210717
  Serious: Yes (Other)
  Sender: FDA-Public Use
  Company Number: US-ROCHE-2825813

PATIENT
  Sex: Female
  Weight: 13.62 kg

DRUGS (6)
  1. PULMOZYME [Suspect]
     Active Substance: DORNASE ALFA
     Indication: DYSPNOEA
     Dosage: DOSE : 1 MG/ML AND INHALE 1 VIAL (2.5 MG TOTAL)
     Route: 055
     Dates: start: 20200304
  2. ATROVENT [Concomitant]
     Active Substance: IPRATROPIUM BROMIDE
     Route: 055
     Dates: start: 20200303
  3. ALBUTEROL SULFATE. [Concomitant]
     Active Substance: ALBUTEROL SULFATE
     Route: 055
     Dates: start: 20200303
  4. PULMOZYME [Suspect]
     Active Substance: DORNASE ALFA
     Indication: RESPIRATORY DISORDER
  5. PULMOZYME [Concomitant]
     Active Substance: DORNASE ALFA
     Route: 055
     Dates: start: 20200303
  6. TRILEPTAL [Concomitant]
     Active Substance: OXCARBAZEPINE
     Route: 048
     Dates: start: 20200303

REACTIONS (2)
  - Seizure [Recovering/Resolving]
  - Product dose omission issue [Unknown]
